FAERS Safety Report 15562652 (Version 3)
Quarter: 2019Q1

REPORT INFORMATION
  Report Type: Spontaneous
  Country: US (occurrence: US)
  Receive Date: 20181029
  Receipt Date: 20190109
  Transmission Date: 20190417
  Serious: No
  Sender: FDA-Public Use
  Company Number: US-BAYER-2018-199875

PATIENT
  Sex: Female

DRUGS (26)
  1. RUXOLITINIB [Suspect]
     Active Substance: RUXOLITINIB
     Indication: POLYCYTHAEMIA VERA
     Dosage: 20 MG, BID
     Route: 048
     Dates: start: 20180314
  2. VITAMIN D3 [Concomitant]
     Active Substance: CHOLECALCIFEROL
     Dosage: UNK
  3. PENTOXYFYLLIN [Concomitant]
     Dosage: UNK
     Route: 065
  4. ASPIRIN [ACETYLSALICYLIC ACID] [Concomitant]
     Active Substance: ASPIRIN
     Dosage: UNK
     Route: 065
  5. INTERFERON BETA - 1B [Suspect]
     Active Substance: INTERFERON BETA-1B
     Indication: PRODUCT USED FOR UNKNOWN INDICATION
     Dosage: UNK
     Route: 065
  6. ANAGRELIDE. [Concomitant]
     Active Substance: ANAGRELIDE HYDROCHLORIDE
     Dosage: UNK
     Route: 065
  7. TURMERIC [CURCUMA LONGA RHIZOME] [Concomitant]
     Active Substance: HERBALS\TURMERIC
     Dosage: UNK
     Route: 065
  8. MULTIVITAMINS [ASCORBIC ACID;ERGOCALCIFEROL;FOLIC ACID;NICOTINAMIDE;PA [Concomitant]
     Dosage: UNK
     Route: 065
  9. RUXOLITINIB [Suspect]
     Active Substance: RUXOLITINIB
     Indication: POLYCYTHAEMIA VERA
     Dosage: 10 MG, BID
     Route: 048
  10. LOSARTAN POTASSIUM. [Concomitant]
     Active Substance: LOSARTAN POTASSIUM
     Dosage: UNK
     Route: 065
  11. BIOTENE DRY MOUTH [GLUCOSE OXIDASE;LACTOFERRIN;LACTOPEROXIDASE;LYSOZYM [Concomitant]
     Dosage: UNK
     Route: 065
  12. RUXOLITINIB [Suspect]
     Active Substance: RUXOLITINIB
     Indication: POLYCYTHAEMIA VERA
     Dosage: 10 MG, BID
     Route: 048
  13. GABAPENTIN. [Suspect]
     Active Substance: GABAPENTIN
     Indication: BURNING SENSATION
     Dosage: UNK
     Route: 065
  14. FOLIC ACID. [Concomitant]
     Active Substance: FOLIC ACID
     Dosage: UNK
     Route: 065
  15. RUXOLITINIB [Suspect]
     Active Substance: RUXOLITINIB
     Indication: POLYCYTHAEMIA VERA
     Dosage: 10 MG, BID
     Route: 048
     Dates: start: 201711
  16. RUXOLITINIB [Suspect]
     Active Substance: RUXOLITINIB
     Indication: POLYCYTHAEMIA VERA
     Dosage: 10 MG, BID
     Route: 048
  17. COLLAGENASE SANTYL [Concomitant]
     Active Substance: COLLAGENASE CLOSTRIDIUM HISTOLYTICUM
     Route: 065
  18. TRIAMCINOLONE [Concomitant]
     Active Substance: TRIAMCINOLONE
     Dosage: UNK
     Route: 065
  19. MAGNESIUM [Concomitant]
     Active Substance: MAGNESIUM
     Dosage: UNK
     Route: 065
  20. MELOXICAM. [Concomitant]
     Active Substance: MELOXICAM
     Dosage: UNK
     Route: 065
  21. SIMVASTATIN. [Concomitant]
     Active Substance: SIMVASTATIN
     Dosage: UNK
     Route: 065
  22. MELATONIN [Concomitant]
     Active Substance: MELATONIN
     Route: 065
  23. HYDROXYUREA. [Suspect]
     Active Substance: HYDROXYUREA
     Indication: PRODUCT USED FOR UNKNOWN INDICATION
     Dosage: UNK
     Route: 065
  24. AMLODIPINE;LISINOPRIL [Concomitant]
     Dosage: UNK
     Route: 065
  25. ASPIRIN 81 [Concomitant]
     Active Substance: ASPIRIN
     Dosage: UNK
     Route: 065
  26. GLUCOSAMINE CHONDROITIN [CHONDROITIN SULFATE SODIUM;GLUCOSAMINE] [Concomitant]
     Dosage: UNK
     Route: 065

REACTIONS (20)
  - Back pain [Unknown]
  - Pain [Unknown]
  - Pruritus [Recovering/Resolving]
  - Contusion [None]
  - Herpes zoster [None]
  - Increased tendency to bruise [None]
  - Impaired healing [None]
  - Platelet count increased [Unknown]
  - White blood cell count increased [None]
  - Skin wound [Recovering/Resolving]
  - Fatigue [Recovering/Resolving]
  - Constipation [Unknown]
  - Feeling abnormal [Unknown]
  - Burning sensation [None]
  - Abnormal behaviour [Unknown]
  - Night sweats [Recovering/Resolving]
  - Splenomegaly [Unknown]
  - Peripheral vascular disorder [None]
  - Therapeutic response decreased [Unknown]
  - Skin ulcer [None]

NARRATIVE: CASE EVENT DATE: 201712
